FAERS Safety Report 6553064-3 (Version None)
Quarter: 2010Q1

REPORT INFORMATION
  Report Type: 
  Country: None (occurrence: None)
  Receive Date: 20100127
  Receipt Date: 20100118
  Transmission Date: 20100710
  Serious: Yes (Hospitalization)
  Sender: FDA-Public Use
  Company Number: US-BAYER-201011840NA

PATIENT
  Age: 64 Year
  Sex: Male

DRUGS (8)
  1. BETASERON [Suspect]
     Indication: RELAPSING-REMITTING MULTIPLE SCLEROSIS
     Dosage: TOTAL DAILY DOSE: 8 MIU
     Route: 058
     Dates: start: 20090916
  2. INDERAL [Concomitant]
     Indication: TREMOR
     Route: 065
  3. CARDURA [Concomitant]
     Route: 065
  4. GABAPENTIN [Concomitant]
     Route: 065
  5. IBUPROFEN [Concomitant]
     Route: 065
  6. LORITAB [Concomitant]
     Route: 065
  7. MIRAPEX [Concomitant]
     Indication: RESTLESS LEGS SYNDROME
     Route: 065
  8. PAXIL [Concomitant]
     Route: 065

REACTIONS (1)
  - GENERALISED OEDEMA [None]
